FAERS Safety Report 5565612-0 (Version None)
Quarter: 2007Q4

REPORT INFORMATION
  Report Type: 
  Country: None (occurrence: None)
  Receive Date: 20071218
  Receipt Date: 20071217
  Transmission Date: 20080405
  Serious: Yes (Death, Congenital Anomaly, Other)
  Sender: FDA-Public Use
  Company Number: GB-BOEHRINGER INGELHEIM PHARMACEUTICALS, INC.-2007-UK-04101UK

PATIENT
  Age: 1 Day
  Sex: Female

DRUGS (4)
  1. VIRAMUNE [Suspect]
     Route: 048
     Dates: start: 20061214, end: 20061214
  2. KALETRA [Suspect]
     Dosage: 6DF
     Route: 064
  3. LAMIVUDINE [Suspect]
     Dosage: 2DF
     Route: 064
     Dates: start: 20061023
  4. ZIDOVUDINE [Suspect]
     Dosage: 8MG/KG
     Route: 048
     Dates: start: 20061214

REACTIONS (2)
  - HYDROCEPHALUS [None]
  - RESPIRATORY DISTRESS [None]
